FAERS Safety Report 7786272-4 (Version None)
Quarter: 2011Q3

REPORT INFORMATION
  Report Type: 
  Country: None (occurrence: None)
  Receive Date: 20110929
  Receipt Date: 20110916
  Transmission Date: 20111222
  Serious: No
  Sender: FDA-Public Use
  Company Number: PHBS2007BR05750

PATIENT
  Age: 68 Year
  Sex: Female
  Weight: 80 kg

DRUGS (12)
  1. METFORMIN HCL [Concomitant]
     Dosage: 500 MG, BID
     Route: 048
  2. COZAAR [Concomitant]
     Indication: DIABETES MELLITUS
     Dosage: 50 MG, QD
     Route: 048
  3. GALVUS MET [Concomitant]
     Dosage: UNK
  4. CARDIZEM [Concomitant]
     Indication: HYPERTENSION
     Dosage: 90 MG, BID
     Route: 048
     Dates: start: 19800101
  5. METFORMIN HYDROCHLORIDE [Concomitant]
     Dosage: UNK
  6. APRESOLINE [Suspect]
     Indication: HYPERTENSION
     Dosage: 25 MG, TID
     Route: 048
  7. FLUOXETINE [Concomitant]
     Indication: HYPERTENSION
     Dosage: 10 MG, QD
     Route: 048
  8. OROXADIN [Concomitant]
     Indication: DIABETES MELLITUS
     Dosage: 3 TIMES A WEEK
     Route: 048
  9. DIURISA [Concomitant]
     Indication: HYPERTENSION
  10. APRESOLINE [Suspect]
     Dosage: 50 MG, ? SUGAR COATED TABLET A DAY
     Route: 048
  11. RABEPRAZOLE SODIUM [Concomitant]
     Dosage: 10 MG, QD
     Route: 048
  12. 3 TIMES A WEEK, [Concomitant]
     Route: 048

REACTIONS (2)
  - INCORRECT DOSE ADMINISTERED [None]
  - BLOOD GLUCOSE INCREASED [None]
